FAERS Safety Report 5174319-3 (Version None)
Quarter: 2006Q4

REPORT INFORMATION
  Report Type: 
  Country: None (occurrence: None)
  Receive Date: 20061214
  Receipt Date: 20061208
  Transmission Date: 20070319
  Serious: Yes (Death)
  Sender: FDA-Public Use
  Company Number: IT-BRISTOL-MYERS SQUIBB COMPANY-13607239

PATIENT
  Age: 59 Year
  Sex: Male

DRUGS (2)
  1. PLATINEX [Suspect]
     Indication: PHARYNGEAL CANCER STAGE UNSPECIFIED
  2. DEXAMETHASONE [Concomitant]
     Route: 040

REACTIONS (2)
  - COMA HEPATIC [None]
  - HEPATITIS ACUTE [None]
